FAERS Safety Report 5890009-3 (Version None)
Quarter: 2008Q3

REPORT INFORMATION
  Report Type: 
  Country: None (occurrence: None)
  Receive Date: 20080919
  Receipt Date: 20080908
  Transmission Date: 20090109
  Serious: Yes (Other)
  Sender: FDA-Public Use
  Company Number: US-PFIZER INC-2008075375

PATIENT
  Sex: Female
  Weight: 47.727 kg

DRUGS (2)
  1. FLAGYL [Suspect]
     Indication: VAGINAL INFECTION
  2. METROGEL [Suspect]

REACTIONS (2)
  - DYSGEUSIA [None]
  - VULVAL DISORDER [None]
